FAERS Safety Report 23945229 (Version 1)
Quarter: 2024Q2

REPORT INFORMATION
  Report Type: Report from Study
  Country: US (occurrence: US)
  Receive Date: 20240606
  Receipt Date: 20240606
  Transmission Date: 20240716
  Serious: Yes (Hospitalization)
  Sender: FDA-Public Use
  Company Number: US-OTSUKA-2024_015697

PATIENT
  Sex: Male
  Weight: 102.51 kg

DRUGS (2)
  1. CEDAZURIDINE\DECITABINE [Suspect]
     Active Substance: CEDAZURIDINE\DECITABINE
     Indication: Myelodysplastic syndrome
     Dosage: 1 DF (35 MG OF DECITABINE AND 100 MG OF CEDAZURIDINE), QD FOR 5 DAYS EVERY 28-DAY (CYCLE 1)
     Route: 048
     Dates: start: 202404
  2. CEDAZURIDINE\DECITABINE [Suspect]
     Active Substance: CEDAZURIDINE\DECITABINE
     Dosage: UNK (4 DAYS)
     Route: 048

REACTIONS (4)
  - Gout [Not Recovered/Not Resolved]
  - Biopsy [Unknown]
  - Infection [Unknown]
  - Fungal infection [Unknown]
